FAERS Safety Report 9685983 (Version 3)
Quarter: 2014Q1

REPORT INFORMATION
  Report Type: Report from Study
  Country: JP (occurrence: JP)
  Receive Date: 20131113
  Receipt Date: 20140112
  Transmission Date: 20141002
  Serious: Yes (Other)
  Sender: FDA-Public Use
  Company Number: JP-ROCHE-1302804

PATIENT
  Age: 66 Year
  Sex: Female

DRUGS (1)
  1. ALTEPLASE [Suspect]
     Indication: ISCHAEMIC STROKE
     Dosage: 10% AS BOLUS, FOLLOWED BY CONTINUOUS INFUSION OF THE REMAINDER OVER 1 H (NOT EXCEEDING 60 MG)
     Route: 040

REACTIONS (2)
  - Cerebrovascular accident [Unknown]
  - Haemorrhagic transformation stroke [Unknown]
